FAERS Safety Report 5733260-5 (Version None)
Quarter: 2008Q2

REPORT INFORMATION
  Report Type: 
  Country: None (occurrence: None)
  Receive Date: 20080509
  Receipt Date: 20080502
  Transmission Date: 20081010
  Serious: Yes (Other)
  Sender: FDA-Public Use
  Company Number: A0727049A

PATIENT
  Age: 48 Year
  Sex: Male
  Weight: 100.9 kg

DRUGS (3)
  1. LAMOTRIGINE [Suspect]
     Indication: BIPOLAR DISORDER
     Route: 048
  2. DEPAKOTE ER [Suspect]
     Indication: BIPOLAR DISORDER
     Dosage: 1500MG PER DAY
     Route: 048
     Dates: start: 19991101
  3. RISPERDAL [Concomitant]
     Dosage: 12MG AS REQUIRED

REACTIONS (3)
  - ANTI-THYROID ANTIBODY POSITIVE [None]
  - AUTOIMMUNE THYROIDITIS [None]
  - HYPERLIPIDAEMIA [None]
